FAERS Safety Report 18776022 (Version 3)
Quarter: 2021Q1

REPORT INFORMATION
  Report Type: Spontaneous
  Country: CN (occurrence: CN)
  Receive Date: 20210122
  Receipt Date: 20210203
  Transmission Date: 20210419
  Serious: Yes (Other)
  Sender: FDA-Public Use
  Company Number: CN-ASTRAZENECA-2021A010309

PATIENT
  Age: 24583 Day
  Sex: Male
  Weight: 45 kg

DRUGS (3)
  1. IMFINZI [Suspect]
     Active Substance: DURVALUMAB
     Indication: NON-SMALL CELL LUNG CANCER STAGE III
     Dosage: 500.0MG UNKNOWN
     Route: 042
     Dates: start: 202101
  2. IMFINZI [Suspect]
     Active Substance: DURVALUMAB
     Indication: NON-SMALL CELL LUNG CANCER STAGE III
     Dosage: 500.0MG UNKNOWN
     Route: 042
     Dates: start: 202008, end: 202010
  3. IMFINZI [Suspect]
     Active Substance: DURVALUMAB
     Indication: NON-SMALL CELL LUNG CANCER STAGE III
     Dosage: 500.0MG UNKNOWN
     Route: 042
     Dates: start: 20200730, end: 20200815

REACTIONS (3)
  - Lung abscess [Recovered/Resolved]
  - Pleural effusion [Recovered/Resolved]
  - Pneumonia bacterial [Recovered/Resolved]

NARRATIVE: CASE EVENT DATE: 20201016
